FAERS Safety Report 4511008-X (Version None)
Quarter: 2004Q4

REPORT INFORMATION
  Report Type: 
  Country: None (occurrence: None)
  Receive Date: 20040928
  Receipt Date: 20040611
  Transmission Date: 20050328
  Serious: No
  Sender: FDA-Public Use
  Company Number: 04P-163-0264401-00

PATIENT
  Age: 64 Year
  Sex: Female

DRUGS (5)
  1. HUMIRA [Suspect]
     Indication: RHEUMATOID ARTHRITIS
     Dosage: 40 MG, 1 IN 2 WK, SUBCUTANEOUS
     Route: 058
     Dates: start: 20040510
  2. PREDNISONE [Concomitant]
  3. CLARINEX [Concomitant]
  4. FUROSEMIDE [Concomitant]
  5. METHOTREXARE SODIUM [Concomitant]

REACTIONS (2)
  - DIABETES MELLITUS [None]
  - RASH [None]
